FAERS Safety Report 10403623 (Version 1)
Quarter: 2014Q3

REPORT INFORMATION
  Report Type: Spontaneous
  Country: JP (occurrence: JP)
  Receive Date: 20140822
  Receipt Date: 20140822
  Transmission Date: 20150326
  Serious: Yes (Death)
  Sender: FDA-Public Use
  Company Number: JP-009507513-1408JPN011993

PATIENT
  Age: 14 Year

DRUGS (1)
  1. TRYPTANOL [Suspect]
     Active Substance: AMITRIPTYLINE
     Dosage: 90 TABLETS= 2250 MG, ONCE
     Route: 048

REACTIONS (1)
  - Intentional overdose [Fatal]
